FAERS Safety Report 5284639-X (Version None)
Quarter: 2007Q2

REPORT INFORMATION
  Report Type: 
  Country: None (occurrence: None)
  Receive Date: 20070403
  Receipt Date: 20070321
  Transmission Date: 20071010
  Serious: Yes (Hospitalization, Other)
  Sender: FDA-Public Use
  Company Number: US-ELI_LILLY_AND_COMPANY-US200701003827

PATIENT
  Age: 57 Year
  Sex: Male

DRUGS (5)
  1. FORTEO [Suspect]
     Indication: OSTEOPOROSIS
     Dosage: UNK, UNK
     Dates: start: 20061019, end: 20070213
  2. PROSCAR                                 /USA/ [Concomitant]
     Indication: PROSTATE EXAMINATION ABNORMAL
     Dates: start: 20010101
  3. HYTRIN [Concomitant]
     Indication: PROSTATE EXAMINATION ABNORMAL
     Dates: start: 20010101
  4. CALCIUM WITH VITAMIN D [Concomitant]
  5. GLUCOSAMINE [Concomitant]

REACTIONS (2)
  - LIPOSARCOMA [None]
  - NON-CARDIAC CHEST PAIN [None]
